FAERS Safety Report 22694025 (Version 6)
Quarter: 2023Q4

REPORT INFORMATION
  Report Type: Report from Study
  Country: CA (occurrence: CA)
  Receive Date: 20230711
  Receipt Date: 20231117
  Transmission Date: 20240110
  Serious: Yes (Hospitalization, Other)
  Sender: FDA-Public Use
  Company Number: CA-HLS-202301673

PATIENT
  Age: 38 Year
  Sex: Male

DRUGS (6)
  1. CLOZARIL [Suspect]
     Active Substance: CLOZAPINE
     Indication: Schizophrenia
     Route: 048
     Dates: start: 20110930, end: 20230708
  2. CLOZARIL [Suspect]
     Active Substance: CLOZAPINE
     Indication: Schizophrenia
     Dosage: 400 MG DAILY
     Route: 048
  3. ARSENIC [Concomitant]
     Active Substance: ARSENIC
     Indication: Acute promyelocytic leukaemia
     Dosage: STARTING 20-JUL UNTIL 20-AUG, 16 MG DAILY
     Route: 042
  4. IDARUBICIN [Concomitant]
     Active Substance: IDARUBICIN
     Indication: Product used for unknown indication
     Dosage: TOTAL OF 4 DOSES FROM JULY 13 TO JULY 19
     Route: 065
  5. TRETINOIN [Concomitant]
     Active Substance: TRETINOIN
     Indication: Acute promyelocytic leukaemia
     Dosage: STARTING 12-JUL UNTIL 17-AUG, 60 MG IN MORNING AND 70 MG IN NIGHT
     Route: 048
  6. HYDROXYUREA [Concomitant]
     Active Substance: HYDROXYUREA
     Indication: Product used for unknown indication
     Route: 065

REACTIONS (6)
  - Acute promyelocytic leukaemia [Recovered/Resolved]
  - Neutropenia [Recovered/Resolved]
  - Leukaemia [Recovered/Resolved]
  - Pancytopenia [Recovered/Resolved]
  - White blood cell count increased [Recovered/Resolved]
  - White blood cell count decreased [Unknown]

NARRATIVE: CASE EVENT DATE: 20230707
